FAERS Safety Report 8357820-0 (Version None)
Quarter: 2012Q2

REPORT INFORMATION
  Report Type: 
  Country: None (occurrence: None)
  Receive Date: 20120514
  Receipt Date: 20110816
  Transmission Date: 20120825
  Serious: No
  Sender: FDA-Public Use
  Company Number: US-TEVA-2011004341

PATIENT
  Sex: Female
  Weight: 54.48 kg

DRUGS (3)
  1. NUVIGIL [Suspect]
     Indication: SLEEP APNOEA SYNDROME
     Route: 048
     Dates: start: 20110301
  2. VITAMIN TAB [Concomitant]
  3. NUVIGIL [Suspect]
     Indication: CIRCADIAN RHYTHM SLEEP DISORDER

REACTIONS (7)
  - TONGUE DRY [None]
  - HYPOAESTHESIA ORAL [None]
  - DRY MOUTH [None]
  - TONGUE HAEMORRHAGE [None]
  - GLOSSODYNIA [None]
  - DRUG DOSE OMISSION [None]
  - TONGUE BITING [None]
